FAERS Safety Report 8483090-9 (Version None)
Quarter: 2012Q2

REPORT INFORMATION
  Report Type: 
  Country: None (occurrence: None)
  Receive Date: 20120625
  Receipt Date: 20120613
  Transmission Date: 20120825
  Serious: Yes (Life-Threatening, Congenital Anomaly)
  Sender: FDA-Public Use
  Company Number: MCA-N-12-066

PATIENT
  Age: 1 Day
  Sex: Female
  Weight: 3.8 kg

DRUGS (1)
  1. VALPROIC ACID [Suspect]

REACTIONS (14)
  - RIGHT VENTRICULAR HYPERTROPHY [None]
  - CYANOSIS [None]
  - NEONATAL CARDIAC FAILURE [None]
  - EXTRASYSTOLES [None]
  - ATRIAL SEPTAL DEFECT [None]
  - QRS AXIS ABNORMAL [None]
  - MATERNAL DRUGS AFFECTING FOETUS [None]
  - NEONATAL RESPIRATORY DISTRESS SYNDROME [None]
  - ELECTROCARDIOGRAM T WAVE INVERSION [None]
  - CARDIOMEGALY [None]
  - CONGENITAL HEPATOMEGALY [None]
  - FOETAL ANTICONVULSANT SYNDROME [None]
  - PERSISTENT LEFT SUPERIOR VENA CAVA [None]
  - PULMONARY OEDEMA NEONATAL [None]
